FAERS Safety Report 5836231-3 (Version None)
Quarter: 2008Q3

REPORT INFORMATION
  Report Type: 
  Country: None (occurrence: None)
  Receive Date: 20080806
  Receipt Date: 20080728
  Transmission Date: 20090109
  Serious: Yes (Life-Threatening, Other)
  Sender: FDA-Public Use
  Company Number: GB-RANBAXY-2007RR-10992

PATIENT

DRUGS (10)
  1. SERTRALINE [Suspect]
     Indication: DEPRESSION
     Dosage: 50 MG, UNK
     Route: 048
     Dates: start: 20051010
  2. SERTRALINE [Suspect]
     Dosage: 50 MG, UNK
     Dates: start: 20061117
  3. SERTRALINE [Suspect]
     Dosage: 100 MG, UNK
     Route: 048
     Dates: start: 20061106, end: 20061206
  4. BECLOMETHASONE DIPROPIONATE [Concomitant]
     Indication: ASTHMA
     Dosage: 100 UG, BID
     Route: 055
  5. CERAZETTE [Concomitant]
  6. INFLUENZA VIRUS [Concomitant]
     Dosage: UNK
     Route: 030
     Dates: start: 20061113, end: 20061113
  7. KETOVITE [Concomitant]
     Indication: CROHN'S DISEASE
     Dosage: UNK
     Route: 030
     Dates: start: 20010101, end: 20061117
  8. LACTULOSE [Concomitant]
     Indication: CONSTIPATION
     Dosage: 15 ML, UNK
     Dates: start: 19930101
  9. LACTULOSE [Concomitant]
     Indication: CROHN'S DISEASE
  10. ALBUTEROL [Concomitant]
     Indication: ASTHMA
     Dosage: UNK
     Route: 055
     Dates: start: 20050314

REACTIONS (3)
  - ANTIPHOSPHOLIPID SYNDROME [None]
  - STILLBIRTH [None]
  - VAGINAL HAEMORRHAGE [None]
